FAERS Safety Report 17566251 (Version 1)
Quarter: 2020Q1

REPORT INFORMATION
  Report Type: Spontaneous
  Country: US (occurrence: US)
  Receive Date: 20200320
  Receipt Date: 20200320
  Transmission Date: 20200409
  Serious: Yes (Other)
  Sender: FDA-Public Use
  Company Number: US-ASTRAZENECA-2020SE40383

PATIENT
  Sex: Female

DRUGS (2)
  1. NEXIUM 24HR [Suspect]
     Active Substance: ESOMEPRAZOLE MAGNESIUM
     Dosage: UNK, DAILY
     Route: 048
  2. ADVIL [Concomitant]
     Active Substance: IBUPROFEN

REACTIONS (7)
  - Hyperhidrosis [Unknown]
  - Intentional product misuse [Unknown]
  - Pain in extremity [Unknown]
  - Product dose omission [Unknown]
  - Intentional product use issue [Unknown]
  - Arterial occlusive disease [Unknown]
  - Oesophageal disorder [Unknown]
